FAERS Safety Report 13466353 (Version 1)
Quarter: 2017Q2

REPORT INFORMATION
  Report Type: Spontaneous
  Country: US (occurrence: US)
  Receive Date: 20170420
  Receipt Date: 20170420
  Transmission Date: 20170830
  Serious: No
  Sender: FDA-Public Use
  Company Number: None

PATIENT
  Sex: Female

DRUGS (1)
  1. IBRANCE [Suspect]
     Active Substance: PALBOCICLIB
     Indication: BREAST CANCER
     Dosage: 75 MG DAILY; 3 WEEKS ON/1 WEEK OFF PO
     Route: 048
     Dates: start: 20161201

REACTIONS (4)
  - Fatigue [None]
  - Influenza [None]
  - Bone marrow failure [None]
  - Drug dose omission [None]
